FAERS Safety Report 8129634-8 (Version None)
Quarter: 2012Q1

REPORT INFORMATION
  Report Type: 
  Country: None (occurrence: None)
  Receive Date: 20120103
  Receipt Date: 20111107
  Transmission Date: 20120608
  Serious: No
  Sender: FDA-Public Use
  Company Number: AE-2011-003195

PATIENT
  Age: 54 Year
  Sex: Female
  Weight: 54.8852 kg

DRUGS (5)
  1. INCIVEK [Suspect]
     Dosage: 2250 MG (750 MG, 1 IN 8 HR), ORAL
     Route: 048
     Dates: start: 20110922
  2. PEGASYS [Concomitant]
  3. Q-DRYL (DIPHENHYDRAMINE) [Concomitant]
  4. RIBAVIRIN [Concomitant]
  5. CLOBETASOL PROPRIONATE 0.05% (CLOBETASOL PROPIONATE) [Concomitant]

REACTIONS (4)
  - DRUG DOSE OMISSION [None]
  - STOMATITIS [None]
  - PRURITUS [None]
  - RASH [None]
